FAERS Safety Report 4870943-3 (Version None)
Quarter: 2005Q4

REPORT INFORMATION
  Report Type: 
  Country: None (occurrence: None)
  Receive Date: 20051229
  Receipt Date: 20051216
  Transmission Date: 20060501
  Serious: Yes (Death, Hospitalization)
  Sender: FDA-Public Use
  Company Number: 2005170661

PATIENT
  Sex: Male

DRUGS (4)
  1. DOXORUBICIN (DOXORUBICIN) [Suspect]
     Indication: ACUTE MYELOID LEUKAEMIA
     Dosage: (25 MG/M*2, 2 IN 1 WK)
  2. VINCRISTINE [Suspect]
     Indication: ACUTE MYELOID LEUKAEMIA
     Dosage: (1.5 MG/M*2, UNKNOWN)
  3. ASPARAGINASE (ASPARAGINASE) [Suspect]
     Indication: ACUTE MYELOID LEUKAEMIA
     Dosage: 1000 UNITS/M^2, UNKNOWN
  4. DEXAMETHASONE TAB [Suspect]
     Indication: ACUTE MYELOID LEUKAEMIA
     Dosage: (10 MG/M*2, FOR 7 DAYS), ORAL
     Route: 048

REACTIONS (16)
  - ADENOVIRUS INFECTION [None]
  - CENTRAL LINE INFECTION [None]
  - COAGULOPATHY [None]
  - DEPRESSED LEVEL OF CONSCIOUSNESS [None]
  - DIARRHOEA [None]
  - GENERAL PHYSICAL HEALTH DETERIORATION [None]
  - HEPATIC ENCEPHALOPATHY [None]
  - HEPATITIS [None]
  - HEPATOMEGALY [None]
  - HERPES SIMPLEX [None]
  - MOUTH ULCERATION [None]
  - PSEUDOMONAS INFECTION [None]
  - PYREXIA [None]
  - RENAL IMPAIRMENT [None]
  - STAPHYLOCOCCAL INFECTION [None]
  - VIRAL LOAD INCREASED [None]
